FAERS Safety Report 20945053 (Version 1)
Quarter: 2022Q2

REPORT INFORMATION
  Report Type: Spontaneous
  Country: US (occurrence: None)
  Receive Date: 20220609
  Receipt Date: 20220609
  Transmission Date: 20220720
  Serious: Yes (Death, Life-Threatening, Disabling)
  Sender: FDA-Public Use
  Company Number: None

PATIENT
  Age: 55 Year
  Sex: Female
  Weight: 68 kg

DRUGS (1)
  1. TENECTEPLASE [Suspect]
     Active Substance: TENECTEPLASE
     Indication: Ischaemic stroke
     Dosage: FREQUENCY : ONCE;?
     Route: 040
     Dates: start: 20220104

REACTIONS (2)
  - Haemorrhagic transformation stroke [None]
  - Pneumonia [None]

NARRATIVE: CASE EVENT DATE: 20220104
